FAERS Safety Report 5855161-4 (Version None)
Quarter: 2008Q3

REPORT INFORMATION
  Report Type: 
  Country: None (occurrence: None)
  Receive Date: 20080822
  Receipt Date: 20030604
  Transmission Date: 20090109
  Serious: No
  Sender: FDA-Public Use
  Company Number: US-ABBOTT-08P-163-0465179-00

PATIENT

DRUGS (3)
  1. LEVOTHYROXINE [Suspect]
     Indication: DRUG USE FOR UNKNOWN INDICATION
  2. LEVOTHYROXINE [Suspect]
  3. LEVOTHYROXINE [Suspect]

REACTIONS (1)
  - WEIGHT DECREASED [None]
